FAERS Safety Report 5977628-0 (Version None)
Quarter: 2008Q4

REPORT INFORMATION
  Report Type: 
  Country: None (occurrence: None)
  Receive Date: 20081124
  Receipt Date: 20081111
  Transmission Date: 20090506
  Serious: Yes (Hospitalization)
  Sender: FDA-Public Use
  Company Number: POMP-1000382

PATIENT
  Age: 11 Month
  Sex: Male
  Weight: 10 kg

DRUGS (10)
  1. MYOZYME [Suspect]
     Indication: GLYCOGEN STORAGE DISEASE TYPE II
     Dosage: 250 MG, Q2W, INTRAVENOUS
     Route: 042
     Dates: start: 20080415
  2. BUDESONIDE [Concomitant]
  3. CETIRIZINE HCL [Concomitant]
  4. DNASE (DEOXYRIBONUCLEASE) [Concomitant]
  5. IPRATROPIUM BROMIDE [Concomitant]
  6. LEVALBUTEROL (LEVOSALBUTAMOL) [Concomitant]
  7. LORAZEPAM [Concomitant]
  8. RANITIDINE [Concomitant]
  9. CROMOLYN (CROMOLYN) [Concomitant]
  10. OMEPRAZOLE [Concomitant]

REACTIONS (13)
  - ACUTE RESPIRATORY FAILURE [None]
  - CLOSTRIDIUM DIFFICILE TOXIN TEST POSITIVE [None]
  - COLLAPSE OF LUNG [None]
  - DIAPHRAGM MUSCLE WEAKNESS [None]
  - INCREASED BRONCHIAL SECRETION [None]
  - INFUSION RELATED REACTION [None]
  - LARYNGEAL OEDEMA [None]
  - LUNG INFECTION PSEUDOMONAL [None]
  - PLEURAL EFFUSION [None]
  - RETCHING [None]
  - TRACHEOMALACIA [None]
  - VOCAL CORD PARALYSIS [None]
  - VOMITING [None]
